FAERS Safety Report 4748162-0 (Version None)
Quarter: 2005Q3

REPORT INFORMATION
  Report Type: 
  Country: None (occurrence: None)
  Receive Date: 20050818
  Receipt Date: 20050812
  Transmission Date: 20060218
  Serious: Yes (Hospitalization)
  Sender: FDA-Public Use
  Company Number: FR-ROCHE-413872

PATIENT
  Age: 65 Year
  Sex: Female

DRUGS (10)
  1. CLONAZEPAM [Suspect]
     Indication: DRUG USE FOR UNKNOWN INDICATION
     Route: 048
     Dates: start: 20020615, end: 20050411
  2. VOLTARENE L.P. [Suspect]
     Indication: DRUG USE FOR UNKNOWN INDICATION
     Route: 048
     Dates: start: 20050115, end: 20050411
  3. ZOCOR [Suspect]
     Route: 048
     Dates: start: 20031027, end: 20050411
  4. EFFEXOR [Suspect]
     Route: 048
     Dates: start: 20050315, end: 20050411
  5. QUINAPRIL HYDROCHLORIDE AND HYDROCHLOROTHIAZDE [Suspect]
     Indication: DRUG USE FOR UNKNOWN INDICATION
     Route: 048
     Dates: start: 20020615, end: 20050411
  6. KARDEGIC [Suspect]
     Indication: DRUG USE FOR UNKNOWN INDICATION
     Route: 048
     Dates: start: 20031027, end: 20050411
  7. CREON [Concomitant]
  8. STAGID [Concomitant]
  9. AMLODIPINE BESYLATE [Concomitant]
  10. INSULATARD NPH HUMAN [Concomitant]

REACTIONS (3)
  - ECCHYMOSIS [None]
  - INJECTION SITE HAEMORRHAGE [None]
  - THROMBOCYTOPENIA [None]
